FAERS Safety Report 21591566 (Version 1)
Quarter: 2022Q4

REPORT INFORMATION
  Report Type: Report from Study
  Country: US (occurrence: US)
  Receive Date: 20221114
  Receipt Date: 20221114
  Transmission Date: 20230113
  Serious: No
  Sender: FDA-Public Use
  Company Number: US-ABBVIE-22K-163-4478585-00

PATIENT
  Sex: Female

DRUGS (2)
  1. SKYRIZI [Suspect]
     Active Substance: RISANKIZUMAB-RZAA
     Indication: Psoriasis
     Dosage: WEEK 0?FORM STRENGTH150 MILLIGRAM?DRUG END DATE WAS 2022
     Route: 058
     Dates: start: 20220713
  2. SKYRIZI [Suspect]
     Active Substance: RISANKIZUMAB-RZAA
     Dosage: WEEK 4?FORM STRENGTH150 MILLIGRAM
     Route: 058
     Dates: start: 202208

REACTIONS (8)
  - Asthma [Unknown]
  - Chills [Unknown]
  - Psoriasis [Recovering/Resolving]
  - Mitochondrial encephalomyopathy [Unknown]
  - Diabetes mellitus [Unknown]
  - Ulcer [Unknown]
  - Fungal infection [Unknown]
  - Autonomic neuropathy [Unknown]
